FAERS Safety Report 8935544 (Version 1)
Quarter: 2012Q4

REPORT INFORMATION
  Report Type: 
  Country: CA (occurrence: CA)
  Receive Date: 20121130
  Receipt Date: 20121130
  Transmission Date: 20130627
  Serious: Yes (Other)
  Sender: FDA-Public Use
  Company Number: PHHY2012CA108598

PATIENT
  Age: 46 Year
  Sex: Male

DRUGS (3)
  1. IMATINIB [Suspect]
     Indication: CHROMOSOME ANALYSIS ABNORMAL
     Dosage: 600 mg, per day
  2. IMATINIB [Suspect]
     Dosage: UKN
  3. CHEMOTHERAPEUTICS NOS [Concomitant]

REACTIONS (5)
  - Pneumatosis intestinalis [Recovering/Resolving]
  - Abdominal distension [Recovering/Resolving]
  - Flatulence [Recovering/Resolving]
  - Escherichia test positive [Recovering/Resolving]
  - Neutropenic sepsis [Recovering/Resolving]
